FAERS Safety Report 22606086 (Version 1)
Quarter: 2023Q2

REPORT INFORMATION
  Report Type: Spontaneous
  Country: US (occurrence: None)
  Receive Date: 20230614
  Receipt Date: 20230614
  Transmission Date: 20230722
  Serious: No
  Sender: FDA-Public Use
  Company Number: None

PATIENT
  Sex: Female

DRUGS (16)
  1. LENALIDOMIDE [Suspect]
     Active Substance: LENALIDOMIDE
     Indication: Myelodysplastic syndrome
     Dosage: FREQUENCY : DAILY;?
     Route: 048
  2. LISINOPRIL [Suspect]
     Active Substance: LISINOPRIL
  3. AMARYL [Suspect]
     Active Substance: GLIMEPIRIDE
  4. CARVEDILOL [Concomitant]
     Active Substance: CARVEDILOL
  5. CELECOXIB [Concomitant]
  6. DIPHENOXYLATE [Concomitant]
     Active Substance: DIPHENOXYLATE
  7. DULOXETINE [Concomitant]
     Active Substance: DULOXETINE
  8. HYDROXYCHLOROQUINE [Concomitant]
     Active Substance: HYDROXYCHLOROQUINE
  9. HYDROXYZINE [Concomitant]
     Active Substance: HYDROXYZINE HYDROCHLORIDE
  10. JANUVIA [Concomitant]
     Active Substance: SITAGLIPTIN PHOSPHATE
  11. OMEPRAZOLE [Concomitant]
     Active Substance: OMEPRAZOLE
  12. RIZATRIPTAN [Concomitant]
     Active Substance: RIZATRIPTAN
  13. SPIRONOLACTONE [Concomitant]
     Active Substance: SPIRONOLACTONE
  14. SUDAFED [Concomitant]
     Active Substance: PSEUDOEPHEDRINE HYDROCHLORIDE
  15. TRAMADOL [Concomitant]
     Active Substance: TRAMADOL
  16. ACETAMINOPHEN [Concomitant]
     Active Substance: ACETAMINOPHEN

REACTIONS (4)
  - Dizziness [None]
  - Fall [None]
  - Head injury [None]
  - Therapy cessation [None]
